FAERS Safety Report 5158083-X (Version None)
Quarter: 2006Q4

REPORT INFORMATION
  Report Type: 
  Country: None (occurrence: None)
  Receive Date: 20061113
  Receipt Date: 20061031
  Transmission Date: 20070319
  Serious: Yes (Other)
  Sender: FDA-Public Use
  Company Number: 200410256BYL

PATIENT
  Age: 32 Year
  Sex: Male

DRUGS (20)
  1. KOGENATE [Suspect]
     Indication: FACTOR VIII DEFICIENCY
     Dosage: SEE IMAGE
     Route: 042
  2. KOGENATE [Suspect]
  3. KOGENATE [Suspect]
  4. KOGENATE [Suspect]
  5. KOGENATE [Suspect]
  6. KOGENATE [Suspect]
  7. KOGENATE [Suspect]
  8. KOGENATE [Suspect]
  9. KOGENATE [Suspect]
  10. KOGENATE [Suspect]
  11. KOGENATE [Suspect]
  12. KOGENATE [Suspect]
  13. KOGENATE [Suspect]
  14. KOGENATE [Suspect]
  15. KOGENATE [Suspect]
  16. KOGENATE [Suspect]
  17. AZT [Concomitant]
  18. LAMIVUDINE [Concomitant]
  19. D4T [Concomitant]
  20. NELFINAVIR [Concomitant]

REACTIONS (2)
  - FACTOR VIII INHIBITION [None]
  - HUMAN ANTI-MOUSE ANTIBODY POSITIVE [None]
